FAERS Safety Report 5133901-X (Version None)
Quarter: 2006Q4

REPORT INFORMATION
  Report Type: 
  Country: None (occurrence: None)
  Receive Date: 20061018
  Receipt Date: 20061006
  Transmission Date: 20070319
  Serious: Yes (Hospitalization)
  Sender: FDA-Public Use
  Company Number: 230866

PATIENT
  Age: 64 Year
  Sex: Female
  Weight: 51.7 kg

DRUGS (5)
  1. AVASTIN [Suspect]
     Indication: OVARIAN CANCER
     Dosage: 15 MG/KG, Q3W, INTRAVENOUS
     Route: 042
     Dates: start: 20060330, end: 20060330
  2. OXALIPLATIN [Suspect]
     Indication: OVARIAN CANCER
     Dosage: 85 MG/M2, Q3W, INTRAVENOUS
     Route: 042
     Dates: start: 20060330, end: 20060330
  3. DOCETAXEL       (DOCETAXEL) [Suspect]
     Indication: OVARIAN CANCER
     Dosage: 75 MG/M2, Q3W, INTRAVENOUS
     Route: 042
     Dates: start: 20060330, end: 20060330
  4. ALPRAZOLAM [Concomitant]
  5. METIPRANOLOL [Concomitant]

REACTIONS (6)
  - ATELECTASIS [None]
  - FEBRILE NEUTROPENIA [None]
  - HAEMATOCRIT DECREASED [None]
  - HAEMOGLOBIN DECREASED [None]
  - HEADACHE [None]
  - PHARYNGOLARYNGEAL PAIN [None]
